FAERS Safety Report 13727633 (Version 2)
Quarter: 2017Q3

REPORT INFORMATION
  Report Type: Spontaneous
  Country: US (occurrence: US)
  Receive Date: 20170707
  Receipt Date: 20170811
  Transmission Date: 20171127
  Serious: Yes (Other)
  Sender: FDA-Public Use
  Company Number: US-PFIZER INC-2017291238

PATIENT
  Age: 77 Year
  Sex: Female
  Weight: 67.12 kg

DRUGS (1)
  1. PREMARIN [Suspect]
     Active Substance: ESTROGENS, CONJUGATED
     Indication: VULVOVAGINAL DRYNESS
     Dosage: 0.5 G, 2X/WEEK AT BEDTIME
     Route: 067
     Dates: start: 20161017

REACTIONS (3)
  - Vulvovaginal pruritus [Unknown]
  - Vaginal haemorrhage [Unknown]
  - Rash [Unknown]
